FAERS Safety Report 11291358 (Version 3)
Quarter: 2016Q4

REPORT INFORMATION
  Report Type: Report from Study
  Country: US (occurrence: US)
  Receive Date: 20150722
  Receipt Date: 20161221
  Transmission Date: 20170206
  Serious: No
  Sender: FDA-Public Use
  Company Number: PHEH2013US018623

PATIENT
  Age: 37 Year
  Sex: Female
  Weight: 52.61 kg

DRUGS (5)
  1. PRENATAL MULTIVITAMIN + DHA [Concomitant]
     Indication: PREGNANCY
     Dosage: 1 DF, QD; DURING 1ST AND 2ND TRIMESTER
     Route: 048
     Dates: start: 20130703
  2. SUDANIN [Concomitant]
     Indication: HYPERSENSITIVITY
     Dosage: 30 MG, QW (WHEN NEEDED)
     Route: 048
     Dates: start: 20130916
  3. GILENYA [Suspect]
     Active Substance: FINGOLIMOD HYDROCHLORIDE
     Indication: RELAPSING-REMITTING MULTIPLE SCLEROSIS
     Dosage: 0.5 MG, QD
     Route: 048
     Dates: start: 20130405, end: 20130620
  4. SPIRONOLACTONE. [Concomitant]
     Active Substance: SPIRONOLACTONE
     Indication: PRODUCT USED FOR UNKNOWN INDICATION
     Dosage: UNTILL 3 MONTH OF PREGNANCY
     Route: 065
  5. PROVIGIL [Concomitant]
     Active Substance: MODAFINIL
     Indication: PRODUCT USED FOR UNKNOWN INDICATION
     Dosage: UNTILL 3 MONTH OF PREGNANCY
     Route: 065

REACTIONS (5)
  - Viral infection [Unknown]
  - Alpha 1 foetoprotein increased [Unknown]
  - Maternal exposure during pregnancy [Unknown]
  - Normal newborn [Unknown]
  - Multiple sclerosis relapse [Unknown]

NARRATIVE: CASE EVENT DATE: 20130701
